FAERS Safety Report 18695421 (Version 1)
Quarter: 2021Q1

REPORT INFORMATION
  Report Type: Spontaneous
  Country: US (occurrence: US)
  Receive Date: 20210104
  Receipt Date: 20210104
  Transmission Date: 20210419
  Serious: Yes (Hospitalization)
  Sender: FDA-Public Use
  Company Number: US-MYLANLABS-2020M1106690

PATIENT
  Age: 76 Year
  Sex: Male

DRUGS (1)
  1. PREDNISONE. [Suspect]
     Active Substance: PREDNISONE
     Indication: BACK PAIN
     Dosage: TAPERING DOSE [EXACT DOSAGE AND ROUTE NOT STATED]
     Route: 065

REACTIONS (3)
  - Strongyloidiasis [Recovered/Resolved]
  - Small intestinal stenosis [Recovered/Resolved]
  - Off label use [Unknown]
